FAERS Safety Report 13682458 (Version 1)
Quarter: 2017Q2

REPORT INFORMATION
  Report Type: Spontaneous
  Country: CN (occurrence: CN)
  Receive Date: 20170623
  Receipt Date: 20170623
  Transmission Date: 20170830
  Serious: Yes (Other)
  Sender: FDA-Public Use
  Company Number: CN-BAXTER-2017BAX025218

PATIENT
  Age: 48 Year
  Sex: Male
  Weight: 60 kg

DRUGS (9)
  1. DEXAMETHASONE. [Suspect]
     Active Substance: DEXAMETHASONE
     Indication: CHILLS
     Route: 042
     Dates: start: 20170323
  2. DEXAMETHASONE. [Suspect]
     Active Substance: DEXAMETHASONE
     Indication: TACHYPNOEA
  3. 0.9% SODIUM CHLORIDE INJECTION [Suspect]
     Active Substance: SODIUM CHLORIDE
     Indication: CHILLS
     Route: 041
     Dates: start: 20170323
  4. DEXAMETHASONE. [Suspect]
     Active Substance: DEXAMETHASONE
     Indication: FEELING COLD
  5. 0.9% SODIUM CHLORIDE INJECTION [Suspect]
     Active Substance: SODIUM CHLORIDE
     Indication: FEELING COLD
  6. 20% MANNITOL INJECTION [Suspect]
     Active Substance: MANNITOL
     Indication: LOCAL SWELLING
     Route: 041
     Dates: start: 20170323, end: 20170323
  7. 0.9% SODIUM CHLORIDE INJECTION [Suspect]
     Active Substance: SODIUM CHLORIDE
     Indication: DYSPNOEA
  8. 0.9% SODIUM CHLORIDE INJECTION [Suspect]
     Active Substance: SODIUM CHLORIDE
     Indication: TACHYPNOEA
  9. DEXAMETHASONE. [Suspect]
     Active Substance: DEXAMETHASONE
     Indication: DYSPNOEA

REACTIONS (5)
  - Vomiting [Recovering/Resolving]
  - Tachypnoea [Recovering/Resolving]
  - Feeling cold [Recovered/Resolved]
  - Chills [Recovered/Resolved]
  - Dyspnoea [Recovered/Resolved]

NARRATIVE: CASE EVENT DATE: 20170323
